FAERS Safety Report 15782581 (Version 1)
Quarter: 2018Q4

REPORT INFORMATION
  Report Type: Spontaneous
  Country: US (occurrence: US)
  Receive Date: 20181212
  Receipt Date: 20181212
  Transmission Date: 20190205
  Serious: No
  Sender: FDA-Public Use
  Company Number: None

PATIENT
  Sex: Female
  Weight: 66.22 kg

DRUGS (2)
  1. PROAIR HFA [Suspect]
     Active Substance: ALBUTEROL SULFATE
  2. LEVOFLOXACIN 500MG [Suspect]
     Active Substance: LEVOFLOXACIN
     Indication: PNEUMONIA
     Dosage: ?          QUANTITY:5 PILLS IN BOTTLE;OTHER FREQUENCY:ONCE DAILY;?
     Dates: start: 20180929, end: 20181002

REACTIONS (7)
  - Dysphagia [None]
  - Dizziness [None]
  - Mouth breathing [None]
  - Heart rate increased [None]
  - Throat irritation [None]
  - Chest pain [None]
  - Throat tightness [None]
